FAERS Safety Report 8265287-6 (Version None)
Quarter: 2012Q2

REPORT INFORMATION
  Report Type: 
  Country: None (occurrence: None)
  Receive Date: 20120406
  Receipt Date: 20120327
  Transmission Date: 20120825
  Serious: Yes (Hospitalization)
  Sender: FDA-Public Use
  Company Number: FR-ROCHE-CID000000001985540

PATIENT
  Sex: Female

DRUGS (6)
  1. BECLOSPIN [Suspect]
     Indication: BRONCHOPNEUMOPATHY
     Route: 055
     Dates: start: 20120131, end: 20120210
  2. TRAMADOL HCL [Concomitant]
     Route: 048
     Dates: end: 20120210
  3. LERCANIDIPINE [Concomitant]
     Route: 048
  4. ACETAMINOPHEN [Concomitant]
     Route: 048
     Dates: start: 20120131
  5. RANITIDINE [Concomitant]
  6. ROCEPHIN [Suspect]
     Indication: BRONCHOPNEUMOPATHY
     Route: 058
     Dates: start: 20120131, end: 20120210

REACTIONS (3)
  - PYREXIA [None]
  - RASH MORBILLIFORM [None]
  - CONFUSIONAL STATE [None]
